FAERS Safety Report 10972960 (Version 3)
Quarter: 2022Q2

REPORT INFORMATION
  Report Type: Spontaneous
  Country: US (occurrence: US)
  Receive Date: 20150331
  Receipt Date: 20220629
  Transmission Date: 20220720
  Serious: No
  Sender: FDA-Public Use
  Company Number: US-JNJFOC-20140410411

PATIENT
  Sex: Male

DRUGS (4)
  1. RISPERDAL [Suspect]
     Active Substance: RISPERIDONE
     Indication: Autism spectrum disorder
     Route: 048
     Dates: start: 200007, end: 200511
  2. RISPERDAL [Suspect]
     Active Substance: RISPERIDONE
     Indication: Autism spectrum disorder
  3. RISPERDAL [Suspect]
     Active Substance: RISPERIDONE
     Indication: Autism spectrum disorder
     Route: 048
  4. RISPERDAL [Suspect]
     Active Substance: RISPERIDONE
     Indication: Autism spectrum disorder

REACTIONS (10)
  - Tic [Unknown]
  - Emotional distress [Unknown]
  - Weight increased [Unknown]
  - Irritability [Unknown]
  - Gynaecomastia [Unknown]
  - Insomnia [Unknown]
  - Hypersomnia [Unknown]
  - Somnolence [Unknown]
  - Muscle spasms [Unknown]
  - Abdominal pain upper [Unknown]
